FAERS Safety Report 6044059-7 (Version None)
Quarter: 2009Q1

REPORT INFORMATION
  Report Type: 
  Country: None (occurrence: None)
  Receive Date: 20090120
  Receipt Date: 20090115
  Transmission Date: 20090719
  Serious: Yes (Life-Threatening, Hospitalization, Other)
  Sender: FDA-Public Use
  Company Number: A0722439A

PATIENT
  Age: 45 Year
  Sex: Male

DRUGS (4)
  1. RYTHMOL [Suspect]
     Indication: ATRIAL FIBRILLATION
     Dosage: 325MG TWICE PER DAY
     Route: 048
     Dates: start: 20070129, end: 20080107
  2. DIGOXIN [Concomitant]
     Indication: ATRIAL FIBRILLATION
     Dosage: .25MG PER DAY
     Dates: start: 20070126
  3. LISINOPRIL [Concomitant]
     Indication: HYPERTENSION
     Dosage: 20MG PER DAY
     Dates: start: 20071123
  4. LOPRESSOR [Concomitant]
     Indication: ATRIAL FIBRILLATION
     Dosage: 100MG TWICE PER DAY
     Dates: start: 20070126

REACTIONS (14)
  - ARRHYTHMIA [None]
  - ATRIAL FIBRILLATION [None]
  - ATRIAL FLUTTER [None]
  - BLOOD CHLORIDE INCREASED [None]
  - BLOOD GLUCOSE INCREASED [None]
  - BLOOD UREA INCREASED [None]
  - CARBON DIOXIDE INCREASED [None]
  - CHOLELITHIASIS [None]
  - DYSPNOEA [None]
  - HAEMODYNAMIC INSTABILITY [None]
  - HEART RATE IRREGULAR [None]
  - RENAL CYST [None]
  - TACHYCARDIA [None]
  - VENTRICULAR FLUTTER [None]
